FAERS Safety Report 15880981 (Version 1)
Quarter: 2019Q1

REPORT INFORMATION
  Report Type: Report from Study
  Country: US (occurrence: US)
  Receive Date: 20190128
  Receipt Date: 20190128
  Transmission Date: 20190417
  Serious: Yes (Hospitalization, Other)
  Sender: FDA-Public Use
  Company Number: US-GILEAD-2019-0386865

PATIENT
  Age: 66 Year
  Sex: Female

DRUGS (1)
  1. RANOLAZINE. [Suspect]
     Active Substance: RANOLAZINE
     Indication: ANGINA PECTORIS
     Dosage: 500 MG, BID
     Route: 048
     Dates: start: 2018

REACTIONS (5)
  - Haemorrhage intracranial [Recovered/Resolved with Sequelae]
  - Fall [Recovered/Resolved with Sequelae]
  - Ear pain [Not Recovered/Not Resolved]
  - Skull fracture [Recovered/Resolved with Sequelae]
  - Headache [Not Recovered/Not Resolved]

NARRATIVE: CASE EVENT DATE: 20180918
